FAERS Safety Report 5251819-9 (Version None)
Quarter: 2007Q1

REPORT INFORMATION
  Report Type: 
  Country: None (occurrence: None)
  Receive Date: 20070228
  Receipt Date: 20070223
  Transmission Date: 20070707
  Serious: Yes (Hospitalization)
  Sender: FDA-Public Use
  Company Number: US-ROXANE LABORATORIES, INC-2007-DE-01121GD

PATIENT
  Sex: Female

DRUGS (5)
  1. PREDNISONE [Suspect]
     Indication: RESPIRATORY TRACT INFECTION
     Dates: start: 20001001
  2. PREDNISONE [Suspect]
  3. CALCIUMCARBONAT [Concomitant]
  4. IMMUNE GLOBULIN INTRAVENOUS (HUMAN) [Concomitant]
     Dosage: 400 MG/KG/MONTH
     Route: 042
  5. ALENDRONATE SODIUM [Concomitant]
     Dosage: 70 MG/WEEK

REACTIONS (10)
  - ADRENAL INSUFFICIENCY [None]
  - ANAEMIA [None]
  - BABESIOSIS [None]
  - BACTERIA STOOL IDENTIFIED [None]
  - DIARRHOEA [None]
  - HYPERGLYCAEMIA [None]
  - HYPOTENSION [None]
  - NAUSEA [None]
  - PYREXIA [None]
  - VOMITING [None]
